FAERS Safety Report 21311113 (Version 1)
Quarter: 2022Q3

REPORT INFORMATION
  Report Type: Spontaneous
  Country: US (occurrence: None)
  Receive Date: 20220909
  Receipt Date: 20220909
  Transmission Date: 20221026
  Serious: No
  Sender: FDA-Public Use
  Company Number: US-FARMAPROD-202201-0066

PATIENT
  Sex: Female

DRUGS (18)
  1. OXERVATE [Suspect]
     Active Substance: CENEGERMIN-BKBJ
     Indication: Neurotrophic keratopathy
     Route: 047
     Dates: start: 20220105, end: 20220302
  2. ICAR [Concomitant]
     Dosage: 15 MG/1.25
  3. IMMUNE SUPPORT COMPLEX [Concomitant]
  4. VITAMIN D-400 [Concomitant]
  5. ELDERBERRY ZINC [Concomitant]
     Dosage: 90 MG-15 MG.
  6. THIAMINE HYDROCHLORIDE [Concomitant]
     Active Substance: THIAMINE HYDROCHLORIDE
  7. CALCIUM 500-100-40 [Concomitant]
  8. XANAX [Concomitant]
     Active Substance: ALPRAZOLAM
  9. ROSUVASTATIN CALCIUM [Concomitant]
     Active Substance: ROSUVASTATIN CALCIUM
  10. ATENOLOL [Concomitant]
     Active Substance: ATENOLOL
  11. ENTYVIO [Concomitant]
     Active Substance: VEDOLIZUMAB
     Dosage: VIAL
  12. ACYCLOVIR [Concomitant]
     Active Substance: ACYCLOVIR
  13. VITAMIN C [Concomitant]
     Active Substance: ASCORBIC ACID
  14. LATANOPROST [Concomitant]
     Active Substance: LATANOPROST
  15. TYLENOL [Concomitant]
     Active Substance: ACETAMINOPHEN
  16. TIMOLOL [Concomitant]
     Active Substance: TIMOLOL
  17. DORZOLAMIDE HYDROCHLORIDE [Concomitant]
     Active Substance: DORZOLAMIDE HYDROCHLORIDE
  18. REFRESH OPTIVE OMEGA 3 [Concomitant]

REACTIONS (2)
  - Eye pain [Unknown]
  - Eye contusion [Unknown]
